FAERS Safety Report 6562048-0 (Version None)
Quarter: 2010Q1

REPORT INFORMATION
  Report Type: 
  Country: None (occurrence: None)
  Receive Date: 20100130
  Receipt Date: 20091116
  Transmission Date: 20100710
  Serious: No
  Sender: FDA-Public Use
  Company Number: US-ABBOTT-09P-163-0597950-00

PATIENT
  Sex: Female
  Weight: 45.4 kg

DRUGS (2)
  1. HUMIRA [Suspect]
     Indication: RHEUMATOID ARTHRITIS
     Dosage: SYRINGE
     Dates: start: 20050101
  2. HUMIRA [Suspect]
     Dosage: PEN

REACTIONS (3)
  - DRY SKIN [None]
  - PRURITUS [None]
  - SKIN EXFOLIATION [None]
